FAERS Safety Report 15737247 (Version 1)
Quarter: 2018Q4

REPORT INFORMATION
  Report Type: Spontaneous
  Country: FR (occurrence: FR)
  Receive Date: 20181218
  Receipt Date: 20181218
  Transmission Date: 20190205
  Serious: Yes (Hospitalization, Other)
  Sender: FDA-Public Use
  Company Number: FR-OTSUKA-2018_038698

PATIENT
  Age: 24 Year
  Sex: Female
  Weight: 76 kg

DRUGS (1)
  1. ABILIFY [Suspect]
     Active Substance: ARIPIPRAZOLE
     Indication: INTELLECTUAL DISABILITY
     Dosage: UNK
     Route: 048
     Dates: start: 20170831, end: 20170908

REACTIONS (6)
  - Apraxia [Recovered/Resolved]
  - Rhabdomyolysis [Recovered/Resolved]
  - Product use in unapproved indication [Unknown]
  - Neuroleptic malignant syndrome [Recovered/Resolved]
  - Confusional state [Recovered/Resolved]
  - Musculoskeletal stiffness [Recovered/Resolved]

NARRATIVE: CASE EVENT DATE: 20170831
